FAERS Safety Report 8407947-X (Version None)
Quarter: 2012Q2

REPORT INFORMATION
  Report Type: 
  Country: None (occurrence: None)
  Receive Date: 20120604
  Receipt Date: 20120525
  Transmission Date: 20120825
  Serious: Yes (Hospitalization)
  Sender: FDA-Public Use
  Company Number: GB-ABBOTT-12P-167-0939491-01

PATIENT
  Sex: Female

DRUGS (6)
  1. CODEINE [Concomitant]
     Indication: PAIN
     Dates: start: 20090401
  2. HUMIRA [Suspect]
     Indication: CROHN'S DISEASE
     Route: 058
     Dates: start: 20080601, end: 20080601
  3. HUMIRA [Suspect]
     Route: 058
  4. CODEINE [Concomitant]
     Indication: CROHN'S DISEASE
  5. AZATHIOPRINE [Concomitant]
     Indication: CROHN'S DISEASE
     Dates: start: 20070801
  6. HUMIRA [Suspect]
     Route: 058

REACTIONS (1)
  - UPPER MOTOR NEURONE LESION [None]
